FAERS Safety Report 8459313-9 (Version None)
Quarter: 2012Q2

REPORT INFORMATION
  Report Type: 
  Country: None (occurrence: None)
  Receive Date: 20120622
  Receipt Date: 20120613
  Transmission Date: 20120825
  Serious: Yes (Other)
  Sender: FDA-Public Use
  Company Number: US-PFIZER INC-2012143734

PATIENT
  Sex: Male

DRUGS (2)
  1. SOLU-MEDROL [Suspect]
     Indication: VISUAL IMPAIRMENT
     Dosage: 500 MG, EVERY 12 HOURS
     Route: 042
     Dates: start: 20120121
  2. REBIF [Suspect]
     Indication: MULTIPLE SCLEROSIS
     Dosage: 44 MCG, 3 IN 1 WEEK
     Route: 058
     Dates: start: 20110718

REACTIONS (6)
  - INJECTION SITE ERYTHEMA [None]
  - SUICIDAL IDEATION [None]
  - VISUAL IMPAIRMENT [None]
  - HYPOAESTHESIA [None]
  - INJECTION SITE INFECTION [None]
  - ERYTHEMA [None]
